FAERS Safety Report 23201963 (Version 1)
Quarter: 2023Q4

REPORT INFORMATION
  Report Type: Spontaneous
  Country: ES (occurrence: ES)
  Receive Date: 20231120
  Receipt Date: 20231120
  Transmission Date: 20240109
  Serious: Yes (Life-Threatening, Hospitalization)
  Sender: FDA-Public Use
  Company Number: None

PATIENT
  Age: 59 Year
  Sex: Male
  Weight: 112 kg

DRUGS (4)
  1. HYDROCHLOROTHIAZIDE\LOSARTAN [Suspect]
     Active Substance: HYDROCHLOROTHIAZIDE\LOSARTAN
     Indication: Hypertension
     Dosage: 1 DOSAGE FORMS DAILY; 1-0-0, 100 MG/25 MG 28 TABLETS,DURATION:4339 DAYS
     Dates: start: 20111205, end: 20231021
  2. IBUPROFEN [Suspect]
     Active Substance: IBUPROFEN
     Indication: Myalgia
     Dosage: 1-1-1,UNIT DOSE:400MG,FREQUENCY TIME:8 HOURS, DURATION:4162 DAYS
     Dates: start: 20120528, end: 20231021
  3. RIVOTRIL [Concomitant]
     Active Substance: CLONAZEPAM
     Indication: Restless legs syndrome
     Dosage: 0.5MG 0-1-1-1 PLUS 2MG IN FOOD FROM 09/20/2023, 60 TABLETS, UNIT DOSE:3.5MG,FREQUENCY TIME:1 DAYS, D
     Dates: start: 20230920, end: 20231021
  4. RIVOTRIL [Concomitant]
     Active Substance: CLONAZEPAM
     Dosage: 0.5MG 0-1-1-1 PLUS 2MG IN FOOD SINCE 09/20/2023,DURATION:8 HOURS, DURATION:4484 DAYS
     Dates: start: 20110611, end: 20230919

REACTIONS (2)
  - Renal failure [Recovered/Resolved]
  - Hyperkalaemia [Recovered/Resolved]

NARRATIVE: CASE EVENT DATE: 20231021
